FAERS Safety Report 7261257-5 (Version None)
Quarter: 2011Q1

REPORT INFORMATION
  Report Type: 
  Country: None (occurrence: None)
  Receive Date: 20110130
  Receipt Date: 20100915
  Transmission Date: 20110831
  Serious: No
  Sender: FDA-Public Use
  Company Number: US-ABBOTT-10P-163-0672101-00

PATIENT
  Sex: Male
  Weight: 56.75 kg

DRUGS (4)
  1. HUMIRA [Suspect]
     Indication: CROHN'S DISEASE
     Dates: start: 20090101
  2. ANTIBIOTICS [Concomitant]
     Indication: UNEVALUABLE EVENT
  3. ALLEGRA [Concomitant]
     Indication: HYPERSENSITIVITY
  4. HUMIRA [Suspect]
     Dates: start: 20090101

REACTIONS (3)
  - COUGH [None]
  - OROPHARYNGEAL PAIN [None]
  - NASOPHARYNGITIS [None]
